FAERS Safety Report 14362724 (Version 1)
Quarter: 2018Q1

REPORT INFORMATION
  Report Type: Spontaneous
  Country: US (occurrence: US)
  Receive Date: 20180105
  Receipt Date: 20180105
  Transmission Date: 20180509
  Serious: Yes (Hospitalization)
  Sender: FDA-Public Use
  Company Number: None

PATIENT
  Age: 63 Year
  Sex: Female

DRUGS (2)
  1. INLYTA [Suspect]
     Active Substance: AXITINIB
     Indication: RENAL CANCER
     Route: 048
     Dates: start: 20171221
  2. INLYTA [Suspect]
     Active Substance: AXITINIB
     Indication: METASTASIS
     Route: 048
     Dates: start: 20171221

REACTIONS (1)
  - Cerebral haemorrhage [None]
